FAERS Safety Report 19611241 (Version 1)
Quarter: 2021Q3

REPORT INFORMATION
  Report Type: Spontaneous
  Country: US (occurrence: US)
  Receive Date: 20210726
  Receipt Date: 20210726
  Transmission Date: 20211014
  Serious: No
  Sender: FDA-Public Use
  Company Number: US-ENDO PHARMACEUTICALS INC-2021-001177

PATIENT
  Age: 74 Year
  Sex: Male
  Weight: 98.41 kg

DRUGS (9)
  1. EDEX [Suspect]
     Active Substance: ALPROSTADIL
     Indication: PENIS DISORDER
     Dosage: 0.25 ML, UNKNOWN
     Route: 065
     Dates: start: 2021
  2. EDEX [Suspect]
     Active Substance: ALPROSTADIL
     Dosage: 0.5 ML, UNKNOWN
     Route: 065
     Dates: start: 20210213
  3. EDEX [Suspect]
     Active Substance: ALPROSTADIL
     Indication: PENIS DISORDER
     Dosage: 0.25 ML, UNKNOWN
     Route: 065
     Dates: start: 2021
  4. EDEX [Suspect]
     Active Substance: ALPROSTADIL
     Indication: PENIS DISORDER
     Dosage: 0.25 ML, UNKNOWN
     Route: 065
     Dates: start: 2021
  5. EDEX [Suspect]
     Active Substance: ALPROSTADIL
     Dosage: 0.5 ML, UNKNOWN
     Route: 065
     Dates: start: 20210213
  6. WARFARIN [Concomitant]
     Active Substance: WARFARIN
     Indication: PRODUCT USED FOR UNKNOWN INDICATION
     Dosage: UNK UNKNOWN, DAILY
     Route: 065
  7. EDEX [Suspect]
     Active Substance: ALPROSTADIL
     Dosage: 0.5 ML, UNKNOWN
     Route: 065
     Dates: start: 20210213
  8. NOVOLIN NOS [Concomitant]
     Active Substance: INSULIN HUMAN
     Indication: PRODUCT USED FOR UNKNOWN INDICATION
     Dosage: UNK UNKNOWN, QID, BEFORE MEALS
     Route: 065
  9. LANTUS [Concomitant]
     Active Substance: INSULIN GLARGINE
     Indication: PRODUCT USED FOR UNKNOWN INDICATION
     Dosage: UNK UNKNOWN, DAILY (AT 11PM)
     Route: 065

REACTIONS (3)
  - Hypoaesthesia [Recovered/Resolved]
  - Paraesthesia [Unknown]
  - Off label use [Recovered/Resolved]

NARRATIVE: CASE EVENT DATE: 2021
